FAERS Safety Report 7621608-6 (Version None)
Quarter: 2011Q3

REPORT INFORMATION
  Report Type: 
  Country: None (occurrence: None)
  Receive Date: 20110719
  Receipt Date: 20110708
  Transmission Date: 20111222
  Serious: Yes (Other)
  Sender: FDA-Public Use
  Company Number: US-BAYER-2011-028889

PATIENT
  Sex: Female
  Weight: 56.4 kg

DRUGS (22)
  1. MAGNEVIST [Suspect]
     Indication: NUCLEAR MAGNETIC RESONANCE IMAGING
     Dosage: UNK
     Route: 042
     Dates: start: 20040911, end: 20040911
  2. MAGNEVIST [Suspect]
     Indication: NUCLEAR MAGNETIC RESONANCE IMAGING BRAIN
     Dosage: UNK
     Dates: start: 20040917, end: 20040917
  3. MAGNEVIST [Suspect]
     Dosage: UNK
     Dates: start: 20040918, end: 20040918
  4. MAGNEVIST [Suspect]
     Indication: VENOGRAM
     Dosage: UNK
     Dates: start: 20051005, end: 20051005
  5. MAGNEVIST [Suspect]
  6. CAPTOPRIL [Concomitant]
  7. PROCRIT [Concomitant]
  8. NIFEDIPINE [Concomitant]
  9. CLONIDINE [Concomitant]
  10. OMNISCAN [Suspect]
     Indication: ANGIOGRAM
     Dosage: 40 ML, ONCE
     Route: 042
     Dates: start: 20051209, end: 20051209
  11. LABETALOL HCL [Concomitant]
  12. NORVASC [Concomitant]
  13. MAGNEVIST [Suspect]
     Indication: ANGIOGRAM
     Dosage: UNK
     Route: 042
     Dates: start: 20040916, end: 20040916
  14. MAGNEVIST [Suspect]
     Dosage: UNK
     Dates: start: 20050517, end: 20050517
  15. MAGNEVIST [Suspect]
     Dosage: 4 ML, ONCE
     Route: 042
     Dates: start: 20060616, end: 20060616
  16. RENAGEL [Concomitant]
  17. METOPROLOL TARTRATE [Concomitant]
  18. LISINOPRIL [Concomitant]
  19. OMNISCAN [Suspect]
     Indication: NUCLEAR MAGNETIC RESONANCE IMAGING
     Dosage: UNK
     Dates: start: 20050510, end: 20050510
  20. OMNISCAN [Suspect]
  21. OMNISCAN [Suspect]
  22. COREG [Concomitant]

REACTIONS (10)
  - JOINT RANGE OF MOTION DECREASED [None]
  - ABASIA [None]
  - NEPHROGENIC SYSTEMIC FIBROSIS [None]
  - TENDON DISORDER [None]
  - ARTHRALGIA [None]
  - JOINT CONTRACTURE [None]
  - SKIN INDURATION [None]
  - SKIN HYPERPIGMENTATION [None]
  - SKIN HYPERTROPHY [None]
  - PAIN IN EXTREMITY [None]
